FAERS Safety Report 11813608 (Version 1)
Quarter: 2015Q4

REPORT INFORMATION
  Report Type: Spontaneous
  Country: US (occurrence: None)
  Receive Date: 20151208
  Receipt Date: 20151208
  Transmission Date: 20160305
  Serious: Yes (Hospitalization)
  Sender: FDA-Public Use
  Company Number: None

PATIENT
  Age: 77 Year
  Sex: Male
  Weight: 60.3 kg

DRUGS (2)
  1. ASPIRIN. [Concomitant]
     Active Substance: ASPIRIN
  2. XARELTO [Suspect]
     Active Substance: RIVAROXABAN
     Indication: PULMONARY EMBOLISM
     Dosage: 1 TAB  QD  ORAL
     Route: 048
     Dates: start: 20151121, end: 20151204

REACTIONS (4)
  - Faeces discoloured [None]
  - Gastrointestinal haemorrhage [None]
  - Dizziness [None]
  - Haemoglobin decreased [None]

NARRATIVE: CASE EVENT DATE: 20151204
